FAERS Safety Report 19812304 (Version 4)
Quarter: 2022Q4

REPORT INFORMATION
  Report Type: Report from Study
  Country: KR (occurrence: KR)
  Receive Date: 20210910
  Receipt Date: 20221022
  Transmission Date: 20230113
  Serious: Yes (Hospitalization, Other)
  Sender: FDA-Public Use
  Company Number: KR-CELLTRION INC.-2021KR011687

PATIENT

DRUGS (13)
  1. TRUXIMA [Suspect]
     Active Substance: RITUXIMAB-ABBS
     Indication: B-cell lymphoma
     Dosage: 712.5 MG (WAS MIXED WITH 5% DEXTROSE 500 ML AND INJECTED INTRAVENOUSLY) TRUXIMA 100MG (IBER:C1D1)
     Route: 042
     Dates: start: 20210708, end: 20210712
  2. TRUXIMA [Suspect]
     Active Substance: RITUXIMAB-ABBS
     Dosage: 712.5 MG (WAS MIXED WITH 5% DEXTROSE 500 ML AND INJECTED INTRAVENOUSLY) TRUXIMA 500 MG
     Route: 042
     Dates: start: 20210708, end: 20210712
  3. TRUXIMA [Suspect]
     Active Substance: RITUXIMAB-ABBS
     Dosage: 712.5 MG (MIXED WITH 5% DEXTROSE 500 ML AND INJECTED INTRAVENOUSLY) TRUXIMA 100 MG
     Route: 042
     Dates: start: 20210729, end: 20210802
  4. TRUXIMA [Suspect]
     Active Substance: RITUXIMAB-ABBS
     Dosage: 712.5 MG (MIXED WITH 5% DEXTROSE 500 ML AND INJECTED INTRAVENOUSLY) TRUXIMA 100 MG
     Route: 042
     Dates: start: 20210729, end: 20210802
  5. TRUXIMA [Suspect]
     Active Substance: RITUXIMAB-ABBS
     Dosage: 712.5 MG (MIXED WITH 5% DEXTROSE 500 ML AND INJECTED INTRAVENOUSLY) TRUXIMA 500 MG (IBER: C2D1)
     Route: 042
     Dates: start: 20210729, end: 20210802
  6. TRUXIMA [Suspect]
     Active Substance: RITUXIMAB-ABBS
     Dosage: C1D8 712.5MG (WAS MIXED WITH 5% DEXTROSE 500 ML AND INJECTED INTRAVENOUSLY) TRUXIMA 100MG
     Route: 042
     Dates: start: 20210715
  7. TRUXIMA [Suspect]
     Active Substance: RITUXIMAB-ABBS
     Dosage: C1D8 712.5MG (WAS MIXED WITH 5% DEXTROSE 500 ML AND INJECTED INTRAVENOUSLY) TRUXIMA 500MG
     Route: 042
     Dates: start: 20210715
  8. TRUXIMA [Suspect]
     Active Substance: RITUXIMAB-ABBS
     Dosage: C1D15 712.5MG (WAS MIXED WITH 5% DEXTROSE 500 ML AND INJECTED INTRAVENOUSLY) TRUXIMA 100MG
     Route: 042
     Dates: start: 20210722
  9. TRUXIMA [Suspect]
     Active Substance: RITUXIMAB-ABBS
     Dosage: C1D15 712.5MG (WAS MIXED WITH 5% DEXTROSE 500 ML AND INJECTED INTRAVENOUSLY) TRUXIMA 500MG
     Route: 042
     Dates: start: 20210722
  10. TRUXIMA [Suspect]
     Active Substance: RITUXIMAB-ABBS
     Dosage: 712.5MG (375MG/M2) 100MG/VIAL
     Dates: start: 20210930, end: 20211004
  11. TRUXIMA [Suspect]
     Active Substance: RITUXIMAB-ABBS
     Dosage: 712.5MG (375MG/M2) 500MG/VIAL
     Dates: start: 20210930, end: 20211004
  12. DEVICE\INSULIN NOS [Concomitant]
     Active Substance: DEVICE\INSULIN NOS
     Indication: Diabetes mellitus
     Dosage: UNK, PRN
     Route: 058
     Dates: start: 2014
  13. HARNAL [Concomitant]
     Active Substance: TAMSULOSIN HYDROCHLORIDE
     Indication: Benign prostatic hyperplasia
     Dosage: 0.2 MG, QD
     Route: 048
     Dates: start: 2020

REACTIONS (2)
  - COVID-19 pneumonia [Recovered/Resolved]
  - Underdose [Unknown]

NARRATIVE: CASE EVENT DATE: 20210820
